FAERS Safety Report 5019129-2 (Version None)
Quarter: 2006Q2

REPORT INFORMATION
  Report Type: 
  Country: None (occurrence: None)
  Receive Date: 20060531
  Receipt Date: 20060517
  Transmission Date: 20061013
  Serious: Yes (Hospitalization)
  Sender: FDA-Public Use
  Company Number: 221943

PATIENT
  Age: 65 Year
  Sex: Female

DRUGS (19)
  1. AVASTIN [Suspect]
     Indication: PANCREATIC CARCINOMA
     Dosage: 425 MG, Q2W, INTRAVENOUS
     Route: 042
     Dates: start: 20060102, end: 20060428
  2. OXALIPLATIN (OXALIPLATIN) [Suspect]
     Indication: PANCREATIC CARCINOMA
     Dosage: 170 MG, Q2W, INTRAVENOUS
     Route: 042
     Dates: start: 20060102, end: 20060428
  3. LEUCOVORIN CALCIUM [Suspect]
     Indication: PANCREATIC CARCINOMA
     Dosage: 400 MG, Q2W, INTRAVENOUS
     Route: 042
     Dates: start: 20060102, end: 20060428
  4. FLUOROURACIL [Suspect]
     Indication: PANCREATIC CARCINOMA
     Dosage: 2400 MG, Q2W, INTRAVENOUS; SEE IMAGE
     Route: 042
     Dates: start: 20060102, end: 20060428
  5. FLUOROURACIL [Suspect]
     Indication: PANCREATIC CARCINOMA
     Dosage: 2400 MG, Q2W, INTRAVENOUS; SEE IMAGE
     Route: 042
     Dates: start: 20060102
  6. DEXAMETHASONE [Suspect]
     Indication: PANCREATIC CARCINOMA
     Dosage: 10 MG, Q2W, INTRAVENOUS
     Route: 042
     Dates: start: 20060102, end: 20060428
  7. ALOXI [Suspect]
     Indication: PANCREATIC CARCINOMA
     Dosage: 0.25 MG, Q2W, INTRAVENOUS
     Route: 042
     Dates: start: 20060102, end: 20060428
  8. CELEXA [Concomitant]
  9. OXYCODONE (OXYCODONE) [Concomitant]
  10. VICODIN [Concomitant]
  11. PANCREASE (PANCRELIPASE) [Concomitant]
  12. COMPAZINE [Concomitant]
  13. ATIVAN [Concomitant]
  14. KYTRIL [Concomitant]
  15. HCTZ (HYDROCHLOROTHIAZIDE) [Concomitant]
  16. NORVASC [Concomitant]
  17. COLACE (DOCUSATE SODIUM) [Concomitant]
  18. PROTONIX [Concomitant]
  19. CARAFATE [Concomitant]

REACTIONS (6)
  - AORTIC DILATATION [None]
  - AORTIC DISSECTION [None]
  - HAEMATOMA [None]
  - JEJUNAL ULCER [None]
  - NECROSIS [None]
  - VOMITING [None]
